FAERS Safety Report 11249702 (Version 1)
Quarter: 2015Q3

REPORT INFORMATION
  Report Type: Spontaneous
  Country: US (occurrence: US)
  Receive Date: 20150708
  Receipt Date: 20150708
  Transmission Date: 20151125
  Serious: No
  Sender: FDA-Public Use
  Company Number: US-ELI_LILLY_AND_COMPANY-US201003003037

PATIENT
  Age: 72 Year
  Sex: Male

DRUGS (2)
  1. TAXOTERE [Concomitant]
     Active Substance: DOCETAXEL
     Indication: LIPOSARCOMA METASTATIC
     Dosage: 168 MG, UNK
  2. GEMZAR [Suspect]
     Active Substance: GEMCITABINE HYDROCHLORIDE
     Indication: LIPOSARCOMA METASTATIC
     Dosage: 1510 MG, UNK

REACTIONS (3)
  - Reflexes abnormal [Recovered/Resolved]
  - Eructation [Recovered/Resolved]
  - Pain [Recovered/Resolved]

NARRATIVE: CASE EVENT DATE: 20100310
